FAERS Safety Report 8194427 (Version 2)
Quarter: 2019Q1

REPORT INFORMATION
  Report Type: Spontaneous
  Country: GB (occurrence: GB)
  Receive Date: 20111024
  Receipt Date: 20190117
  Transmission Date: 20190418
  Serious: Yes (Hospitalization)
  Sender: FDA-Public Use
  Company Number: GB-RANBAXY-2011R1-48970

PATIENT
  Age: 35 Year
  Sex: Male
  Weight: 108 kg

DRUGS (5)
  1. PAROXETINE. [Concomitant]
     Active Substance: PAROXETINE
     Indication: ANXIETY
     Dosage: 20 MILLIGRAM, ONGOING
     Route: 048
     Dates: start: 20110628
  2. SERTRALINE [Suspect]
     Active Substance: SERTRALINE HYDROCHLORIDE
     Indication: ANXIETY
     Dosage: UNK
     Route: 048
     Dates: start: 201105, end: 20110627
  3. HALOPERIDOL. [Concomitant]
     Active Substance: HALOPERIDOL
     Indication: AGITATION
     Dosage: 1.5 MILLIGRAM, DAILY, 1.5MG UP TO 4 TIMES A DAY
     Route: 048
  4. MOVICOL [Concomitant]
     Active Substance: POLYETHYLENE GLYCOL 3350\POTASSIUM CHLORIDE\SODIUM BICARBONATE\SODIUM CHLORIDE
     Indication: CONSTIPATION
     Dosage: AS NECESSARY
     Route: 048
  5. RISPERIDONE. [Concomitant]
     Active Substance: RISPERIDONE
     Indication: ANXIETY
     Dosage: 3 MILLIGRAM, DAILY, REGULARLY OVER LAST 3 MONTHS
     Route: 048

REACTIONS (2)
  - Generalised tonic-clonic seizure [Recovered/Resolved]
  - Epilepsy [Recovered/Resolved]

NARRATIVE: CASE EVENT DATE: 20110603
